FAERS Safety Report 6981289-1 (Version None)
Quarter: 2010Q3

REPORT INFORMATION
  Report Type: 
  Country: None (occurrence: None)
  Receive Date: 20100909
  Receipt Date: 20100827
  Transmission Date: 20110219
  Serious: Yes (Death, Hospitalization)
  Sender: FDA-Public Use
  Company Number: A-NJ2010-36748

PATIENT
  Age: 67 Year
  Sex: Male

DRUGS (1)
  1. TRACLEER [Suspect]
     Indication: PULMONARY ARTERIAL HYPERTENSION
     Dosage: , ORAL
     Route: 048
     Dates: start: 20091222, end: 20100504

REACTIONS (2)
  - DIABETES MELLITUS [None]
  - PULMONARY ARTERIAL HYPERTENSION [None]
